FAERS Safety Report 15831032 (Version 1)
Quarter: 2019Q1

REPORT INFORMATION
  Report Type: Spontaneous
  Country: US (occurrence: US)
  Receive Date: 20190116
  Receipt Date: 20190116
  Transmission Date: 20190417
  Serious: No
  Sender: FDA-Public Use
  Company Number: US-CELGENEUS-USA-20190101796

PATIENT
  Sex: Female

DRUGS (3)
  1. REVLIMID [Suspect]
     Active Substance: LENALIDOMIDE
     Dosage: 5 MILLIGRAM
     Route: 048
     Dates: start: 20101104
  2. REVLIMID [Suspect]
     Active Substance: LENALIDOMIDE
     Indication: LUNG NEOPLASM MALIGNANT
     Dosage: 10 MILLIGRAM
     Route: 048
     Dates: start: 200909
  3. REVLIMID [Suspect]
     Active Substance: LENALIDOMIDE
     Indication: MYELODYSPLASTIC SYNDROME
     Dosage: 5-10 MILLIGRAM
     Route: 048
     Dates: start: 200912

REACTIONS (2)
  - Muscle spasms [Not Recovered/Not Resolved]
  - Product dose omission [Unknown]
